FAERS Safety Report 7454289-5 (Version None)
Quarter: 2011Q2

REPORT INFORMATION
  Report Type: 
  Country: None (occurrence: None)
  Receive Date: 20110503
  Receipt Date: 20110425
  Transmission Date: 20111010
  Serious: Yes (Hospitalization)
  Sender: FDA-Public Use
  Company Number: US-US-EMD SERONO, INC.-7056234

PATIENT
  Sex: Female

DRUGS (2)
  1. REBIF [Suspect]
     Route: 058
     Dates: start: 20110422
  2. REBIF [Suspect]
     Indication: MULTIPLE SCLEROSIS
     Dates: start: 20110318, end: 20110422

REACTIONS (6)
  - MYALGIA [None]
  - BODY TEMPERATURE INCREASED [None]
  - HEART RATE ABNORMAL [None]
  - BLOOD PRESSURE ABNORMAL [None]
  - TREMOR [None]
  - HEADACHE [None]
